FAERS Safety Report 6240077-4 (Version None)
Quarter: 2009Q2

REPORT INFORMATION
  Report Type: 
  Country: None (occurrence: None)
  Receive Date: 20090618
  Receipt Date: 20090618
  Transmission Date: 20091009
  Serious: Yes (Other)
  Sender: FDA-Public Use
  Company Number: None

PATIENT
  Sex: Female
  Weight: 72.5755 kg

DRUGS (1)
  1. ZICAM NOSEPRAY [Suspect]
     Indication: NASOPHARYNGITIS
     Dosage: 1 SPRAY

REACTIONS (6)
  - BURNING SENSATION [None]
  - HEADACHE [None]
  - MIGRAINE [None]
  - NASAL DISCOMFORT [None]
  - PAIN [None]
  - PAROSMIA [None]
